FAERS Safety Report 21740788 (Version 1)
Quarter: 2022Q4

REPORT INFORMATION
  Report Type: Spontaneous
  Country: US (occurrence: US)
  Receive Date: 20221216
  Receipt Date: 20221216
  Transmission Date: 20230112
  Serious: No
  Sender: FDA-Public Use
  Company Number: US-MYLANLABS-2022M1138352

PATIENT
  Age: 72 Year
  Sex: Male
  Weight: 98.88 kg

DRUGS (1)
  1. CARVEDILOL [Suspect]
     Active Substance: CARVEDILOL
     Indication: Hypertension
     Dosage: 1.5 DOSAGE FORM, BID, PILL AND HALF TWICE DAILY
     Route: 048
     Dates: start: 20221019, end: 20221207

REACTIONS (3)
  - Peripheral swelling [Recovered/Resolved]
  - Lethargy [Not Recovered/Not Resolved]
  - Blood pressure increased [Not Recovered/Not Resolved]

NARRATIVE: CASE EVENT DATE: 20221122
